FAERS Safety Report 8081599-3 (Version None)
Quarter: 2012Q1

REPORT INFORMATION
  Report Type: 
  Country: None (occurrence: None)
  Receive Date: 20120130
  Receipt Date: 20120120
  Transmission Date: 20120608
  Serious: Yes (Other)
  Sender: FDA-Public Use
  Company Number: CHPA2012US001792

PATIENT
  Age: 49 Year
  Sex: Female

DRUGS (1)
  1. EXCEDRIN EXTRA STRENGTH TABLETS [Suspect]
     Indication: PAIN IN EXTREMITY
     Dosage: 2 DF, UNK
     Dates: start: 20111015

REACTIONS (4)
  - FEELING ABNORMAL [None]
  - LOSS OF CONSCIOUSNESS [None]
  - DIZZINESS [None]
  - FEELING DRUNK [None]
